FAERS Safety Report 11471591 (Version 2)
Quarter: 2015Q3

REPORT INFORMATION
  Report Type: Spontaneous
  Country: US (occurrence: US)
  Receive Date: 20150903
  Receipt Date: 20150903
  Transmission Date: 20151125
  Serious: No
  Sender: FDA-Public Use
  Company Number: US-ELI_LILLY_AND_COMPANY-US201203003285

PATIENT
  Age: 45 Year
  Sex: Female

DRUGS (8)
  1. SOMA [Concomitant]
     Active Substance: CARISOPRODOL
  2. LORTAB [Concomitant]
     Active Substance: ACETAMINOPHEN\HYDROCODONE BITARTRATE
  3. ADDERALL [Concomitant]
     Active Substance: AMPHETAMINE ASPARTATE\AMPHETAMINE SULFATE\DEXTROAMPHETAMINE SACCHARATE\DEXTROAMPHETAMINE SULFATE
  4. BACLOFEN. [Concomitant]
     Active Substance: BACLOFEN
  5. NIFEDIPINE. [Concomitant]
     Active Substance: NIFEDIPINE
  6. LYRICA [Concomitant]
     Active Substance: PREGABALIN
  7. CYMBALTA [Suspect]
     Active Substance: DULOXETINE HYDROCHLORIDE
     Indication: MUSCULOSKELETAL PAIN
     Dosage: 30 MG, QD
  8. VALIUM [Concomitant]
     Active Substance: DIAZEPAM

REACTIONS (10)
  - Fatigue [Unknown]
  - Pain [Unknown]
  - Musculoskeletal stiffness [Unknown]
  - Hypersomnia [Unknown]
  - Neuralgia [Unknown]
  - Paraesthesia [Unknown]
  - Extrapyramidal disorder [Unknown]
  - Muscle twitching [Recovering/Resolving]
  - Vision blurred [Unknown]
  - Weight decreased [Unknown]
